FAERS Safety Report 8365288-3 (Version None)
Quarter: 2012Q2

REPORT INFORMATION
  Report Type: 
  Country: None (occurrence: None)
  Receive Date: 20120516
  Receipt Date: 20120502
  Transmission Date: 20120825
  Serious: Yes (Hospitalization, Other)
  Sender: FDA-Public Use
  Company Number: TW-COVIDIEN/TYCO HEALTHCARE/MALLINCKRODT-T201201711

PATIENT
  Age: 1 Day
  Sex: Male
  Weight: 2.016 kg

DRUGS (4)
  1. METHADOSE [Suspect]
     Dosage: UNK
  2. AMPHETAMINES [Suspect]
  3. METHAMPHETAMINE HYDROCHLORIDE [Suspect]
     Dosage: UNK
  4. HEROIN [Suspect]
     Dosage: UNK

REACTIONS (8)
  - FAILURE TO THRIVE [None]
  - DEVELOPMENTAL DELAY [None]
  - DRUG WITHDRAWAL SYNDROME NEONATAL [None]
  - NEONATAL ASPIRATION [None]
  - CYANOSIS [None]
  - UMBILICAL CORD AROUND NECK [None]
  - FOETAL DISTRESS SYNDROME [None]
  - FOETAL GROWTH RESTRICTION [None]
